FAERS Safety Report 7372725-X (Version None)
Quarter: 2011Q1

REPORT INFORMATION
  Report Type: 
  Country: None (occurrence: None)
  Receive Date: 20110324
  Receipt Date: 20110315
  Transmission Date: 20110831
  Serious: Yes (Hospitalization)
  Sender: FDA-Public Use
  Company Number: US-MPIJNJ-2011-01070

PATIENT
  Age: 86 Year
  Sex: Male
  Weight: 81.8 kg

DRUGS (2)
  1. VELCADE [Suspect]
     Indication: MULTIPLE MYELOMA
     Dosage: 1.6 MG/M2, CYCLIC
     Route: 042
     Dates: start: 20101119
  2. DECADRON [Suspect]
     Indication: MULTIPLE MYELOMA
     Dosage: 40 MG, CYCLIC
     Route: 048
     Dates: start: 20101119

REACTIONS (4)
  - MUSCULAR WEAKNESS [None]
  - RADICULOPATHY [None]
  - INTERVERTEBRAL DISC DISORDER [None]
  - LUMBAR SPINAL STENOSIS [None]
